FAERS Safety Report 4357292-7 (Version None)
Quarter: 2004Q2

REPORT INFORMATION
  Report Type: 
  Country: None (occurrence: None)
  Receive Date: 20040513
  Receipt Date: 20040317
  Transmission Date: 20050107
  Serious: Yes (Other)
  Sender: FDA-Public Use
  Company Number: PHBS2004BR03673

PATIENT
  Age: 76 Year
  Sex: Female
  Weight: 75 kg

DRUGS (3)
  1. HYDERGINE [Suspect]
     Indication: CONFUSIONAL STATE
     Route: 048
     Dates: start: 20040310
  2. ENALAPRIL MALEATE [Concomitant]
     Indication: HYPERTENSION
     Dosage: 1 TABLET (10 MG), BID
     Route: 048
  3. RETEMIC [Concomitant]
     Indication: URINARY INCONTINENCE
     Dosage: 1/2 TABLET /MORNING 1/2 AT NIGHT
     Route: 047

REACTIONS (1)
  - APTYALISM [None]
